FAERS Safety Report 23760467 (Version 2)
Quarter: 2024Q2

REPORT INFORMATION
  Report Type: Spontaneous
  Country: DE (occurrence: DE)
  Receive Date: 20240419
  Receipt Date: 20240503
  Transmission Date: 20240716
  Serious: Yes (Life-Threatening, Other)
  Sender: FDA-Public Use
  Company Number: None

PATIENT

DRUGS (3)
  1. MOMELOTINIB [Suspect]
     Active Substance: MOMELOTINIB
     Indication: Myelodysplastic syndrome
     Dosage: 200 MG, QD
     Route: 048
     Dates: start: 20240313, end: 20240322
  2. MOMELOTINIB [Suspect]
     Active Substance: MOMELOTINIB
     Indication: Myeloproliferative neoplasm
  3. MOMELOTINIB [Suspect]
     Active Substance: MOMELOTINIB
     Indication: Myeloproliferative neoplasm

REACTIONS (1)
  - Subileus [Recovered/Resolved]

NARRATIVE: CASE EVENT DATE: 20240326
